FAERS Safety Report 7557489-9 (Version None)
Quarter: 2011Q2

REPORT INFORMATION
  Report Type: 
  Country: None (occurrence: None)
  Receive Date: 20110620
  Receipt Date: 20110611
  Transmission Date: 20111010
  Serious: Yes (Other)
  Sender: FDA-Public Use
  Company Number: SE-MPIJNJ-2011-02495

PATIENT

DRUGS (3)
  1. DEXAMETHASONE [Concomitant]
  2. CYCLOPHOSPHAMIDE [Concomitant]
  3. VELCADE [Suspect]
     Indication: PRODUCT USED FOR UNKNOWN INDICATION
     Route: 065

REACTIONS (1)
  - CARDIOTOXICITY [None]
